FAERS Safety Report 8319830 (Version 4)
Quarter: 2013Q4

REPORT INFORMATION
  Report Type: Spontaneous
  Country: NO (occurrence: NO)
  Receive Date: 20120103
  Receipt Date: 20131120
  Transmission Date: 20140711
  Serious: Yes (Hospitalization, Disabling, Other)
  Sender: FDA-Public Use
  Company Number: GB-GILEAD-2012-0048687

PATIENT
  Age: 50 Year
  Sex: Female

DRUGS (6)
  1. AMBRISENTAN [Suspect]
     Indication: PULMONARY HYPERTENSION
     Dosage: 5 MG, QD
     Route: 048
     Dates: start: 20100810, end: 20101006
  2. MAREVAN [Concomitant]
     Indication: CARDIAC DISORDER
     Route: 048
  3. MAREVAN [Concomitant]
     Route: 048
  4. DIURAL                             /00032601/ [Concomitant]
     Indication: PULMONARY HYPERTENSION
     Dosage: 40 MG, UNK
     Route: 048
  5. SPIRIX [Concomitant]
     Indication: CARDIAC FAILURE
     Route: 048
  6. SPIRIX [Concomitant]
     Route: 048

REACTIONS (7)
  - Deafness unilateral [Not Recovered/Not Resolved]
  - Tinnitus [Recovering/Resolving]
  - Paraesthesia [Recovering/Resolving]
  - Vertigo [Recovering/Resolving]
  - Vomiting [Recovered/Resolved]
  - Dizziness [Recovered/Resolved]
  - Nausea [Recovering/Resolving]
